FAERS Safety Report 23831704 (Version 1)
Quarter: 2024Q2

REPORT INFORMATION
  Report Type: Spontaneous
  Country: CN (occurrence: CN)
  Receive Date: 20240508
  Receipt Date: 20240508
  Transmission Date: 20240716
  Serious: Yes (Other)
  Sender: FDA-Public Use
  Company Number: None

PATIENT
  Age: 61 Year
  Sex: Male
  Weight: 74 kg

DRUGS (3)
  1. GLYCERIN\LECITHIN\MEDIUM-CHAIN TRIGLYCERIDES\SOYBEAN OIL [Suspect]
     Active Substance: GLYCERIN\LECITHIN\MEDIUM-CHAIN TRIGLYCERIDES\SOYBEAN OIL
     Indication: Nutritional supplementation
     Dosage: 250 ML, ONCE DAILY (DOSAGE FORM: INJECTION)
     Route: 041
     Dates: start: 20240425, end: 20240425
  2. DEXAMETHASONE SODIUM PHOSPHATE [Suspect]
     Active Substance: DEXAMETHASONE PHOSPHATE\DEXAMETHASONE SODIUM PHOSPHATE
     Indication: Adverse event
     Dosage: 10 MG
     Route: 042
     Dates: start: 20240425
  3. INDOMETHACIN [Suspect]
     Active Substance: INDOMETHACIN
     Indication: Adverse event
     Dosage: 1 CAPSULE TO BE INSERTED INTO THE ANUS
     Route: 054
     Dates: start: 20240425

REACTIONS (6)
  - Temperature intolerance [Recovering/Resolving]
  - Tachypnoea [Recovering/Resolving]
  - Body temperature increased [Recovering/Resolving]
  - Chest discomfort [Recovering/Resolving]
  - Chills [Recovering/Resolving]
  - Urine abnormality [Unknown]

NARRATIVE: CASE EVENT DATE: 20240425
